FAERS Safety Report 6755661-9 (Version None)
Quarter: 2010Q2

REPORT INFORMATION
  Report Type: 
  Country: None (occurrence: None)
  Receive Date: 20100602
  Receipt Date: 20100520
  Transmission Date: 20101027
  Serious: Yes (Other)
  Sender: FDA-Public Use
  Company Number: 2010AP001062

PATIENT
  Age: 26 Year
  Sex: Female

DRUGS (5)
  1. LAMOTRIGINE [Suspect]
     Indication: GRAND MAL CONVULSION
     Dosage: 50 MG; PO
     Route: 048
     Dates: start: 20100401
  2. GENTIAN (GENTIAN) [Concomitant]
  3. VALERIAN EXTRACT (VALERIAN EXTRACT) [Concomitant]
  4. DIPHENHYDRAMINE HCL [Concomitant]
  5. HUMULUS LUPULUS EXTRACT (HUMULUS LUPULUS EXTRACT) [Concomitant]

REACTIONS (2)
  - NECK MASS [None]
  - RASH GENERALISED [None]
